FAERS Safety Report 4949634-6 (Version None)
Quarter: 2006Q1

REPORT INFORMATION
  Report Type: 
  Country: None (occurrence: None)
  Receive Date: 20060316
  Receipt Date: 20060302
  Transmission Date: 20060701
  Serious: Yes (Hospitalization)
  Sender: FDA-Public Use
  Company Number: 200508IM000460

PATIENT
  Age: 80 Year
  Sex: Male
  Weight: 89 kg

DRUGS (10)
  1. INTERFERON GAMMA-1B [Suspect]
     Indication: IDIOPATHIC PULMONARY FIBROSIS
     Dosage: SEE IMAGE
     Route: 058
     Dates: start: 20031212, end: 20050810
  2. INTERFERON GAMMA-1B [Suspect]
     Indication: IDIOPATHIC PULMONARY FIBROSIS
     Dosage: SEE IMAGE
     Route: 058
     Dates: start: 20051212, end: 20051225
  3. INTERFERON GAMMA-1B [Suspect]
     Indication: IDIOPATHIC PULMONARY FIBROSIS
     Dosage: SEE IMAGE
     Route: 058
     Dates: start: 20051226
  4. COUMADIN [Suspect]
     Indication: PULMONARY EMBOLISM
     Dosage: 4 MG, QD, ORAL
     Route: 048
     Dates: start: 20050421, end: 20050811
  5. COUMADIN [Suspect]
     Indication: PULMONARY EMBOLISM
     Dosage: 4 MG, QD, ORAL
     Route: 048
     Dates: start: 20050917
  6. COREG [Concomitant]
  7. LISINOPRIL [Concomitant]
  8. ZOCOR [Concomitant]
  9. PREDNISONE [Concomitant]
  10. ADVAIR DISKUS 100/50 [Concomitant]

REACTIONS (17)
  - ANAEMIA [None]
  - ASTHENIA [None]
  - BLOOD PRESSURE SYSTOLIC DECREASED [None]
  - DIARRHOEA HAEMORRHAGIC [None]
  - DIVERTICULUM INTESTINAL HAEMORRHAGIC [None]
  - DIZZINESS [None]
  - FALL [None]
  - GASTRIC ULCER [None]
  - GASTRITIS [None]
  - HEAD INJURY [None]
  - HELICOBACTER INFECTION [None]
  - HYPOKALAEMIA [None]
  - IMMUNE SYSTEM DISORDER [None]
  - INTERNATIONAL NORMALISED RATIO ABNORMAL [None]
  - INTERNATIONAL NORMALISED RATIO INCREASED [None]
  - LOWER GASTROINTESTINAL HAEMORRHAGE [None]
  - PULMONARY FIBROSIS [None]
